FAERS Safety Report 10892659 (Version 3)
Quarter: 2015Q3

REPORT INFORMATION
  Report Type: Spontaneous
  Country: IT (occurrence: IT)
  Receive Date: 20150306
  Receipt Date: 20150706
  Transmission Date: 20151125
  Serious: Yes (Hospitalization)
  Sender: FDA-Public Use
  Company Number: PHHY2015IT023861

PATIENT
  Age: 31 Year
  Sex: Female

DRUGS (2)
  1. DAPAROX (PAROXETINE) [Suspect]
     Active Substance: PAROXETINE HYDROCHLORIDE
     Indication: INTENTIONAL SELF-INJURY
     Dosage: 18.5 ML, ONCE/SINGLE
     Route: 048
     Dates: start: 20150101, end: 20150101
  2. ALPRAZOLAM. [Suspect]
     Active Substance: ALPRAZOLAM
     Indication: INTENTIONAL SELF-INJURY
     Dosage: 75 MG, ONCE/SINGLE
     Route: 048
     Dates: start: 20150101, end: 20150101

REACTIONS (3)
  - Drug abuse [Unknown]
  - Intentional self-injury [Recovering/Resolving]
  - Somnolence [Recovering/Resolving]

NARRATIVE: CASE EVENT DATE: 20150101
